FAERS Safety Report 10861200 (Version 4)
Quarter: 2016Q4

REPORT INFORMATION
  Report Type: Report from Study
  Country: US (occurrence: US)
  Receive Date: 20150224
  Receipt Date: 20161109
  Transmission Date: 20170206
  Serious: Yes (Hospitalization)
  Sender: FDA-Public Use
  Company Number: US-MERCK-1502USA008589

PATIENT
  Age: 19 Year
  Sex: Male
  Weight: 85.4 kg

DRUGS (2)
  1. VORINOSTAT [Suspect]
     Active Substance: VORINOSTAT
     Dosage: 200 OR 400 MG ADMINISTERED ON A 3 DAYS ON/4 DAYS OFF SCHEDULE FOR 3 MONTHS AT EACH DOSE LEVEL.
     Route: 048
  2. VORINOSTAT [Suspect]
     Active Substance: VORINOSTAT
     Indication: NIEMANN-PICK DISEASE
     Dosage: ESCALATED TO 400 MG, EVERY 2 WEEKS
     Route: 048
     Dates: start: 20150116

REACTIONS (7)
  - Breath odour [Unknown]
  - Weight decreased [Unknown]
  - Liver function test increased [Recovered/Resolved]
  - Contusion [Unknown]
  - Decreased appetite [Unknown]
  - Ocular icterus [Unknown]
  - Epstein-Barr virus infection [Recovered/Resolved]

NARRATIVE: CASE EVENT DATE: 201502
